FAERS Safety Report 15565532 (Version 1)
Quarter: 2018Q4

REPORT INFORMATION
  Report Type: Spontaneous
  Country: US (occurrence: US)
  Receive Date: 20181024
  Receipt Date: 20181024
  Transmission Date: 20190205
  Serious: Yes (Life-Threatening, Other)
  Sender: FDA-Public Use
  Company Number: None

PATIENT
  Age: 49 Year
  Sex: Female

DRUGS (5)
  1. OXYCODONE [Concomitant]
     Active Substance: OXYCODONE
  2. ALLOPURINAL [Concomitant]
     Active Substance: ALLOPURINOL
  3. HUMIRA [Suspect]
     Active Substance: ADALIMUMAB
     Route: 058
     Dates: start: 20180119
  4. PREDNISONE. [Concomitant]
     Active Substance: PREDNISONE
  5. METHOCARBAMOL. [Suspect]
     Active Substance: METHOCARBAMOL

REACTIONS (2)
  - Therapy cessation [None]
  - B-cell lymphoma stage IV [None]
